FAERS Safety Report 5247552-X (Version None)
Quarter: 2007Q1

REPORT INFORMATION
  Report Type: 
  Country: None (occurrence: None)
  Receive Date: 20070227
  Receipt Date: 20070216
  Transmission Date: 20070707
  Serious: Yes (Other)
  Sender: FDA-Public Use
  Company Number: PHFR2007GB00834

PATIENT
  Age: 57 Year
  Sex: Female

DRUGS (3)
  1. CLOZARIL [Suspect]
     Indication: SCHIZOPHRENIA
     Dosage: 350MG DAILY
     Route: 048
     Dates: start: 20050124
  2. CLOPIXOL                           /00876701/ [Concomitant]
     Route: 065
  3. SULPIRIDE [Concomitant]
     Route: 065

REACTIONS (2)
  - ELECTROCARDIOGRAM QT CORRECTED INTERVAL PROLONGED [None]
  - OBSESSIVE THOUGHTS [None]
